FAERS Safety Report 9059364 (Version 2)
Quarter: 2013Q2

REPORT INFORMATION
  Report Type: Spontaneous
  Country: US (occurrence: US)
  Receive Date: 20130211
  Receipt Date: 20130516
  Transmission Date: 20140414
  Serious: No
  Sender: FDA-Public Use
  Company Number: US-VERTEX PHARMACEUTICALS INC.-2013-001870

PATIENT
  Sex: Female
  Weight: 27.21 kg

DRUGS (8)
  1. KALYDECO [Suspect]
     Indication: CYSTIC FIBROSIS
     Dosage: 150 MG, BID
     Route: 048
  2. CREON [Concomitant]
  3. SALINEX [Concomitant]
  4. ALBUTEROL [Concomitant]
  5. ACIDOPHILUS [Concomitant]
  6. MULTIVITAMIN [Concomitant]
  7. HYPERTONIC SALINE SOLUTION [Concomitant]
  8. ALLEGRA [Concomitant]
     Dosage: 30 MG, UNK

REACTIONS (5)
  - Eye pruritus [Unknown]
  - Fatigue [Unknown]
  - Oropharyngeal pain [Unknown]
  - Abdominal pain upper [Unknown]
  - Rhinorrhoea [Unknown]
